FAERS Safety Report 7369397-7 (Version None)
Quarter: 2011Q1

REPORT INFORMATION
  Report Type: 
  Country: None (occurrence: None)
  Receive Date: 20110323
  Receipt Date: 20110316
  Transmission Date: 20110831
  Serious: Yes (Hospitalization)
  Sender: FDA-Public Use
  Company Number: NL-ABBOTT-11P-114-0712294-00

PATIENT
  Sex: Female
  Weight: 58 kg

DRUGS (2)
  1. METHYLPHENIDATE [Concomitant]
     Indication: ATTENTION DEFICIT/HYPERACTIVITY DISORDER
     Route: 048
     Dates: start: 20080101
  2. HUMIRA [Suspect]
     Indication: CROHN'S DISEASE
     Route: 058
     Dates: start: 20110211, end: 20110225

REACTIONS (3)
  - PYREXIA [None]
  - HERPES VIRUS INFECTION [None]
  - HEADACHE [None]
